FAERS Safety Report 5313976-5 (Version None)
Quarter: 2007Q2

REPORT INFORMATION
  Report Type: 
  Country: None (occurrence: None)
  Receive Date: 20070501
  Receipt Date: 20070413
  Transmission Date: 20071010
  Serious: Yes (Death)
  Sender: FDA-Public Use
  Company Number: NL-GENENTECH-240718

PATIENT
  Sex: Male

DRUGS (4)
  1. BEVACIZUMAB [Suspect]
     Indication: COLORECTAL CANCER
     Dosage: 750 MG, Q3W
     Route: 042
     Dates: start: 20060121
  2. CAPECITABINE [Suspect]
     Indication: COLORECTAL CANCER
     Dosage: 3000 MG, QD
     Route: 048
     Dates: start: 20060131
  3. OXALIPLATIN [Suspect]
     Indication: COLORECTAL CANCER
     Dosage: 280 MG, Q3W
     Route: 042
     Dates: start: 20060131
  4. DETRUSITOL [Concomitant]
     Indication: DRUG USE FOR UNKNOWN INDICATION

REACTIONS (1)
  - DEATH [None]
